FAERS Safety Report 12202275 (Version 2)
Quarter: 2016Q2

REPORT INFORMATION
  Report Type: Report from Study
  Country: JP (occurrence: JP)
  Receive Date: 20160322
  Receipt Date: 20160406
  Transmission Date: 20160815
  Serious: Yes (Hospitalization)
  Sender: FDA-Public Use
  Company Number: JP-ASTRAZENECA-2016SE29377

PATIENT
  Age: 29957 Day
  Sex: Male

DRUGS (7)
  1. RISUMIC [Concomitant]
     Active Substance: AMEZINIUM METILSULFATE
     Indication: ORTHOSTATIC HYPOTENSION
     Route: 048
  2. KINEDAK [Suspect]
     Active Substance: EPALRESTAT
     Indication: DIABETIC NEUROPATHY
     Route: 048
     Dates: start: 20050502
  3. HOCHUEKKITO [Concomitant]
     Active Substance: HERBALS
     Indication: FATIGUE
     Route: 048
  4. NOVORAPID [Concomitant]
     Active Substance: INSULIN ASPART
     Indication: TYPE 1 DIABETES MELLITUS
     Route: 058
  5. AZD6140 [Suspect]
     Active Substance: TICAGRELOR
     Indication: PERIPHERAL ARTERIAL OCCLUSIVE DISEASE
     Route: 048
     Dates: start: 20130401
  6. PROHEPARM [Concomitant]
     Active Substance: CHOLINE BITARTRATE\CYANOCOBALAMIN\CYSTEINE\INOSITOL\MAMMAL LIVER
     Indication: CHRONIC HEPATITIS C
     Route: 048
  7. DOPS [Concomitant]
     Active Substance: DROXIDOPA
     Indication: ATROPHY
     Route: 048

REACTIONS (1)
  - Pyelonephritis acute [Recovered/Resolved]

NARRATIVE: CASE EVENT DATE: 20160208
